FAERS Safety Report 12656789 (Version 2)
Quarter: 2021Q3

REPORT INFORMATION
  Report Type: Report from Study
  Country: None (occurrence: CA)
  Receive Date: 20160816
  Receipt Date: 20210910
  Transmission Date: 20211014
  Serious: Yes (Other)
  Sender: FDA-Public Use
  Company Number: CA-ABBVIE-16K-028-1699906-00

PATIENT
  Sex: Female

DRUGS (3)
  1. METHOTREXATE. [Concomitant]
     Active Substance: METHOTREXATE
     Indication: PRODUCT USED FOR UNKNOWN INDICATION
     Dosage: DECREASED
     Route: 058
  2. HUMIRA [Suspect]
     Active Substance: ADALIMUMAB
     Indication: SERONEGATIVE ARTHRITIS
     Route: 058
     Dates: start: 20100603
  3. METHOTREXATE. [Concomitant]
     Active Substance: METHOTREXATE
     Dosage: RESTARTED
     Route: 058

REACTIONS (4)
  - Inguinal hernia perforation [Not Recovered/Not Resolved]
  - Spinal cord compression [Not Recovered/Not Resolved]
  - Spinal pain [Not Recovered/Not Resolved]
  - Fear of disease [Not Recovered/Not Resolved]

NARRATIVE: CASE EVENT DATE: 2016
